FAERS Safety Report 6699695-1 (Version None)
Quarter: 2010Q2

REPORT INFORMATION
  Report Type: 
  Country: None (occurrence: None)
  Receive Date: 20100428
  Receipt Date: 20100420
  Transmission Date: 20101027
  Serious: No
  Sender: FDA-Public Use
  Company Number: US-BIOGENIDEC-2010BI013149

PATIENT
  Age: 61 Year
  Sex: Male

DRUGS (1)
  1. AVONEX [Suspect]
     Indication: MULTIPLE SCLEROSIS
     Route: 030
     Dates: start: 20100210

REACTIONS (6)
  - APATHY [None]
  - ASTHENIA [None]
  - DECREASED APPETITE [None]
  - DYSPHONIA [None]
  - HEADACHE [None]
  - INFLUENZA LIKE ILLNESS [None]
